FAERS Safety Report 7104930-1 (Version None)
Quarter: 2010Q4

REPORT INFORMATION
  Report Type: 
  Country: None (occurrence: None)
  Receive Date: 20101116
  Receipt Date: 20101109
  Transmission Date: 20110411
  Serious: Yes (Other)
  Sender: FDA-Public Use
  Company Number: US-GENZYME-THYM-1002057

PATIENT
  Age: 27 Year
  Sex: Male
  Weight: 51 kg

DRUGS (11)
  1. THYMOGLOBULIN [Suspect]
     Indication: PROPHYLAXIS AGAINST TRANSPLANT REJECTION
     Dosage: UNK
     Route: 042
     Dates: start: 20080101
  2. METHYLPREDNISOLONE [Concomitant]
     Indication: PROPHYLAXIS AGAINST TRANSPLANT REJECTION
     Dosage: UNK
     Route: 042
  3. MYCOPHENOLIC ACID [Concomitant]
     Indication: IMMUNOSUPPRESSANT DRUG THERAPY
     Dosage: 720 MG, BID
  4. TACROLIMUS [Concomitant]
     Indication: IMMUNOSUPPRESSANT DRUG THERAPY
     Dosage: 1 MG, BID
  5. CLONIDINE [Concomitant]
     Indication: BLOOD PRESSURE MANAGEMENT
     Dosage: 0.2 MG, BID
  6. CLONIDINE [Concomitant]
     Dosage: 0.2 MG, UNK
     Route: 062
  7. PROPRANOLOL [Concomitant]
     Indication: BLOOD PRESSURE MANAGEMENT
     Dosage: 20 MG, BID
  8. FLUDROCORTISONE [Concomitant]
     Dosage: 0.1 MG, QD
  9. MIDODRINE HYDROCHLORIDE [Concomitant]
     Dosage: 2.5 MG, QD
  10. MYCOPHENOLATE MOFETIL [Concomitant]
     Dosage: 500 MG, BID
  11. TACROLIMUS [Concomitant]
     Dosage: 6 MG, BID

REACTIONS (2)
  - BRONCHIAL SECRETION RETENTION [None]
  - HYPOVOLAEMIA [None]
